FAERS Safety Report 22142316 (Version 3)
Quarter: 2023Q2

REPORT INFORMATION
  Report Type: Report from Study
  Country: US (occurrence: US)
  Receive Date: 20230327
  Receipt Date: 20230517
  Transmission Date: 20230721
  Serious: Yes (Other)
  Sender: FDA-Public Use
  Company Number: US-BAYER-2023A017959

PATIENT
  Age: 78 Year
  Sex: Male

DRUGS (5)
  1. STIVARGA [Suspect]
     Active Substance: REGORAFENIB
     Indication: Gastrointestinal stromal tumour
     Dosage: 80 MG, QD
     Route: 048
  2. STIVARGA [Suspect]
     Active Substance: REGORAFENIB
     Indication: Malignant connective tissue neoplasm
     Dosage: 160 MG, QD X21 DAYS, THEN OFF 7 DAYS
     Route: 048
  3. STIVARGA [Suspect]
     Active Substance: REGORAFENIB
     Indication: Soft tissue sarcoma
     Dosage: 120 MG, QD WITH LOW FAT MEAL FOR 21 DAYS THEN 7DAYS OFF
     Route: 048
  4. STIVARGA [Suspect]
     Active Substance: REGORAFENIB
     Indication: Malignant neoplasm of thorax
  5. COSMETICS [Concomitant]
     Active Substance: COSMETICS

REACTIONS (21)
  - Hypertension [Not Recovered/Not Resolved]
  - Blood pressure increased [Recovered/Resolved]
  - Gait disturbance [None]
  - Visual impairment [None]
  - Blindness [Not Recovered/Not Resolved]
  - Pain in extremity [None]
  - Pain in extremity [Not Recovered/Not Resolved]
  - Palmar-plantar erythrodysaesthesia syndrome [Not Recovered/Not Resolved]
  - Dysphonia [Recovering/Resolving]
  - Asthenia [Not Recovered/Not Resolved]
  - Blood pressure increased [Not Recovered/Not Resolved]
  - Palmar-plantar erythrodysaesthesia syndrome [Not Recovered/Not Resolved]
  - Dysphonia [None]
  - Skin exfoliation [None]
  - Palmar-plantar erythrodysaesthesia syndrome [Recovering/Resolving]
  - Alopecia [Not Recovered/Not Resolved]
  - Dysphonia [Not Recovered/Not Resolved]
  - Hypertension [Not Recovered/Not Resolved]
  - Skin exfoliation [Not Recovered/Not Resolved]
  - Pain in extremity [Not Recovered/Not Resolved]
  - Off label use [None]

NARRATIVE: CASE EVENT DATE: 20230213
